FAERS Safety Report 11705516 (Version 1)
Quarter: 2015Q4

REPORT INFORMATION
  Report Type: Spontaneous
  Country: US (occurrence: US)
  Receive Date: 20151106
  Receipt Date: 20151106
  Transmission Date: 20160304
  Serious: No
  Sender: FDA-Public Use
  Company Number: US-APOTEX-2015AP012898

PATIENT

DRUGS (1)
  1. FENTANYL TRANSDERMAL SYSTEM [Suspect]
     Active Substance: FENTANYL
     Indication: PAIN
     Dosage: 150 ?G/72 HR
     Route: 062

REACTIONS (4)
  - Device leakage [Unknown]
  - Drug ineffective [Unknown]
  - Product quality issue [Unknown]
  - Product adhesion issue [Unknown]
